FAERS Safety Report 20394827 (Version 3)
Quarter: 2022Q4

REPORT INFORMATION
  Report Type: Spontaneous
  Country: US (occurrence: US)
  Receive Date: 20220130
  Receipt Date: 20221206
  Transmission Date: 20230113
  Serious: Yes (Other)
  Sender: FDA-Public Use
  Company Number: US-JNJFOC-20220148468

PATIENT
  Age: 59 Year
  Sex: Male
  Weight: 77.089 kg

DRUGS (15)
  1. XARELTO [Suspect]
     Active Substance: RIVAROXABAN
     Indication: Product used for unknown indication
     Route: 048
     Dates: start: 20220117
  2. METHIMAZOLE [Concomitant]
     Active Substance: METHIMAZOLE
     Dosage: WITH FOOD WITH 90 DAYS SUPPLY
     Route: 048
  3. METFORMIN HYDROCHLORIDE [Concomitant]
     Active Substance: METFORMIN HYDROCHLORIDE
     Route: 048
  4. IRBESARTAN [Concomitant]
     Active Substance: IRBESARTAN
     Dosage: 300 MG - 12.5 MG
     Route: 048
  5. ALENDRONATE SODIUM [Concomitant]
     Active Substance: ALENDRONATE SODIUM
     Route: 048
     Dates: start: 20211210
  6. ERGOCALCIFEROLO [Concomitant]
     Route: 048
     Dates: start: 20211210
  7. CYCLOBENZAPRINE HYDROCHLORIDE [Concomitant]
     Active Substance: CYCLOBENZAPRINE HYDROCHLORIDE
     Route: 048
     Dates: start: 20211210
  8. IRBESARTAN AND HYDROCHLOROTHIAZIDE [Concomitant]
     Active Substance: HYDROCHLOROTHIAZIDE\IRBESARTAN
     Dosage: 300 MG- 12.5 MG
     Route: 048
  9. IBUPROFEN [Concomitant]
     Active Substance: IBUPROFEN
     Route: 048
  10. TRAMADOL HYDROCHLORIDE [Concomitant]
     Active Substance: TRAMADOL HYDROCHLORIDE
     Route: 048
  11. TRIAMCINOLONE ACETONIDE [Concomitant]
     Active Substance: TRIAMCINOLONE ACETONIDE
     Route: 061
  12. ALENDRONATE SODIUM [Concomitant]
     Active Substance: ALENDRONATE SODIUM
     Route: 048
  13. SIMVASTATIN [Concomitant]
     Active Substance: SIMVASTATIN
     Route: 048
  14. METHIMAZOLE [Concomitant]
     Active Substance: METHIMAZOLE
     Route: 048
  15. CYCLOBENZAPRINE HYDROCHLORIDE [Concomitant]
     Active Substance: CYCLOBENZAPRINE HYDROCHLORIDE
     Route: 048

REACTIONS (13)
  - Cerebrovascular accident [Unknown]
  - Prostate cancer [Unknown]
  - Hyperthyroidism [Unknown]
  - Cerebral infarction [Unknown]
  - Hypertensive nephropathy [Unknown]
  - Diabetic nephropathy [Unknown]
  - Hepatic steatosis [Unknown]
  - Prostatic specific antigen increased [Unknown]
  - Lung disorder [Unknown]
  - Hypertension [Unknown]
  - Bone disorder [Unknown]
  - Vitamin D deficiency [Unknown]
  - Spinal disorder [Unknown]

NARRATIVE: CASE EVENT DATE: 20220101
